FAERS Safety Report 18019944 (Version 3)
Quarter: 2020Q3

REPORT INFORMATION
  Report Type: Spontaneous
  Country: US (occurrence: US)
  Receive Date: 20200714
  Receipt Date: 20200716
  Transmission Date: 20201103
  Serious: No
  Sender: FDA-Public Use
  Company Number: US-PFIZER INC-2020268247

PATIENT
  Age: 66 Year
  Sex: Female
  Weight: 61.23 kg

DRUGS (2)
  1. ANASTROZOLE. [Concomitant]
     Active Substance: ANASTROZOLE
     Indication: BREAST CANCER STAGE IV
     Dosage: UNK [ONCE BY MOUTH DAILY]
     Route: 048
  2. IBRANCE [Suspect]
     Active Substance: PALBOCICLIB
     Indication: BREAST CANCER STAGE IV
     Dosage: 100 MG, CYCLIC [100 MG, 21 DAY SUPPLY, 1 TABLET BY MOUTH DAILY AND THEN OFF 7 DAYS]
     Route: 048
     Dates: start: 201904

REACTIONS (14)
  - Neck pain [Unknown]
  - Headache [Unknown]
  - Fatigue [Unknown]
  - Asthenia [Unknown]
  - Hyperhidrosis [Unknown]
  - Anxiety [Unknown]
  - Urinary tract infection [Unknown]
  - Visual impairment [Unknown]
  - Hot flush [Unknown]
  - Dizziness [Unknown]
  - Decreased appetite [Unknown]
  - Diarrhoea [Unknown]
  - Paraesthesia [Unknown]
  - Coordination abnormal [Unknown]
